FAERS Safety Report 26157036 (Version 1)
Quarter: 2025Q4

REPORT INFORMATION
  Report Type: Spontaneous
  Country: US (occurrence: US)
  Receive Date: 20251215
  Receipt Date: 20251215
  Transmission Date: 20260118
  Serious: Yes (Other)
  Sender: BRISTOL-MYERS SQUIBB COMPANY
  Company Number: US-BRISTOL-MYERS SQUIBB COMPANY-2025-167043

PATIENT
  Age: 63 Year
  Sex: Male

DRUGS (2)
  1. IPILIMUMAB [Suspect]
     Active Substance: IPILIMUMAB
     Indication: Conjunctival melanoma
     Dosage: THE TREATMENT DURATION WAS 11 WEEKS
  2. NIVOLUMAB [Suspect]
     Active Substance: NIVOLUMAB
     Indication: Conjunctival melanoma
     Dosage: THE TREATMENT DURATION WAS 11 WEEKS

REACTIONS (1)
  - Pneumonitis [Unknown]
